FAERS Safety Report 24943541 (Version 1)
Quarter: 2025Q1

REPORT INFORMATION
  Report Type: Spontaneous
  Country: CZ (occurrence: CZ)
  Receive Date: 20250207
  Receipt Date: 20250207
  Transmission Date: 20250408
  Serious: Yes (Other)
  Sender: ALEXION PHARMACEUTICALS
  Company Number: CZ-AstraZeneca-CH-00748836A

PATIENT

DRUGS (10)
  1. IMFINZI [Suspect]
     Active Substance: DURVALUMAB
     Indication: Neoplasm malignant
  2. IMFINZI [Suspect]
     Active Substance: DURVALUMAB
  3. IMFINZI [Suspect]
     Active Substance: DURVALUMAB
  4. IMFINZI [Suspect]
     Active Substance: DURVALUMAB
  5. IMFINZI [Suspect]
     Active Substance: DURVALUMAB
  6. IMFINZI [Suspect]
     Active Substance: DURVALUMAB
  7. IMFINZI [Suspect]
     Active Substance: DURVALUMAB
  8. IMFINZI [Suspect]
     Active Substance: DURVALUMAB
  9. CARBOPLATIN [Concomitant]
     Active Substance: CARBOPLATIN
     Indication: Neoplasm malignant
  10. ETOPOSIDE [Concomitant]
     Active Substance: ETOPOSIDE
     Indication: Neoplasm malignant

REACTIONS (2)
  - Blood creatinine increased [Recovered/Resolved with Sequelae]
  - Tumour pseudoprogression [Unknown]
